FAERS Safety Report 5508119-9 (Version None)
Quarter: 2007Q4

REPORT INFORMATION
  Report Type: 
  Country: None (occurrence: None)
  Receive Date: 20071106
  Receipt Date: 20071030
  Transmission Date: 20080405
  Serious: Yes (Hospitalization)
  Sender: FDA-Public Use
  Company Number: US-ASTRAZENECA-2007UW25185

PATIENT
  Age: 79 Year
  Sex: Female
  Weight: 71.7 kg

DRUGS (8)
  1. CRESTOR [Suspect]
     Route: 048
  2. WELCHOL [Concomitant]
  3. LISINOPRIL [Concomitant]
     Route: 048
  4. DIPYRIDAMOLE [Concomitant]
  5. ACETAMINOPHEN [Concomitant]
  6. FOSAMAX [Concomitant]
  7. VITAMIN D [Concomitant]
  8. CALCIUM PLUS [Concomitant]

REACTIONS (3)
  - HEMIPLEGIA [None]
  - SENSATION OF HEAVINESS [None]
  - TRANSIENT ISCHAEMIC ATTACK [None]
